FAERS Safety Report 24120058 (Version 1)
Quarter: 2024Q3

REPORT INFORMATION
  Report Type: Spontaneous
  Country: CN (occurrence: CN)
  Receive Date: 20240722
  Receipt Date: 20240722
  Transmission Date: 20241017
  Serious: Yes (Hospitalization, Other)
  Sender: PFIZER
  Company Number: CN-PFIZER INC-PV202400093988

PATIENT
  Age: 59 Year
  Sex: Male
  Weight: 55.5 kg

DRUGS (2)
  1. CYTARABINE [Suspect]
     Active Substance: CYTARABINE
     Indication: Acute myeloid leukaemia
     Dosage: 3200 MG, 2X/DAY
     Route: 041
     Dates: start: 20240621, end: 20240623
  2. DEXTROSE [Concomitant]
     Active Substance: DEXTROSE\DEXTROSE MONOHYDRATE
     Indication: Vehicle solution use
     Dosage: 500 ML, 2X/DAY
     Route: 041
     Dates: start: 20240621, end: 20240623

REACTIONS (7)
  - White blood cell count decreased [Recovered/Resolved]
  - Platelet count decreased [Recovered/Resolved]
  - Neutrophil count decreased [Recovered/Resolved]
  - C-reactive protein increased [Recovered/Resolved]
  - Myelosuppression [Recovered/Resolved]
  - Haemorrhage subcutaneous [Recovered/Resolved]
  - Pyrexia [Recovered/Resolved]

NARRATIVE: CASE EVENT DATE: 20240628
